FAERS Safety Report 16174486 (Version 1)
Quarter: 2019Q2

REPORT INFORMATION
  Report Type: Report from Study
  Country: US (occurrence: US)
  Receive Date: 20190409
  Receipt Date: 20190409
  Transmission Date: 20190711
  Serious: Yes (Death)
  Sender: FDA-Public Use
  Company Number: US-ADAMAS PHARMA, LLC-2019ADA00708

PATIENT
  Age: 74 Year
  Sex: Male

DRUGS (8)
  1. RYTARY [Concomitant]
     Active Substance: CARBIDOPA\LEVODOPA
  2. GABAPENTIN. [Concomitant]
     Active Substance: GABAPENTIN
  3. RASAGILINE. [Concomitant]
     Active Substance: RASAGILINE
  4. ALFUZOSIN [Concomitant]
     Active Substance: ALFUZOSIN
  5. SINEMET [Concomitant]
     Active Substance: CARBIDOPA\LEVODOPA
  6. OXYBUTYNIN. [Concomitant]
     Active Substance: OXYBUTYNIN CHLORIDE
  7. GOCOVRI [Suspect]
     Active Substance: AMANTADINE
     Indication: DYSKINESIA
     Dosage: 274 MG, 1X/DAY, AT NIGHT
     Route: 048
     Dates: start: 20181204
  8. AMANTADINE. [Concomitant]
     Active Substance: AMANTADINE HYDROCHLORIDE

REACTIONS (1)
  - Death [Fatal]

NARRATIVE: CASE EVENT DATE: 20190315
